FAERS Safety Report 4673459-2 (Version None)
Quarter: 2005Q2

REPORT INFORMATION
  Report Type: 
  Country: None (occurrence: None)
  Receive Date: 20050525
  Receipt Date: 20050514
  Transmission Date: 20051028
  Serious: Yes (Other)
  Sender: FDA-Public Use
  Company Number: GB-GLAXOSMITHKLINE-B0381069A

PATIENT
  Age: 40 Year
  Sex: Female
  Weight: 85 kg

DRUGS (4)
  1. ZYBAN [Suspect]
     Dosage: 150MG PER DAY
     Route: 048
     Dates: start: 20050424, end: 20050504
  2. MICROVAL [Concomitant]
     Indication: CONTRACEPTION
     Dosage: 30MCG PER DAY
     Route: 048
     Dates: start: 20041005, end: 20050429
  3. VIT C TAB [Concomitant]
     Dosage: 500MG PER DAY
     Route: 048
  4. NUROFEN [Concomitant]
     Indication: HEADACHE
     Route: 048

REACTIONS (6)
  - DEPRESSION [None]
  - HEADACHE [None]
  - HYPERHIDROSIS [None]
  - PRURITUS [None]
  - SALIVARY HYPERSECRETION [None]
  - SKIN DISORDER [None]
